FAERS Safety Report 5131523-8 (Version None)
Quarter: 2006Q4

REPORT INFORMATION
  Report Type: 
  Country: None (occurrence: None)
  Receive Date: 20061016
  Receipt Date: 20061004
  Transmission Date: 20070319
  Serious: Yes (Disabling, Other)
  Sender: FDA-Public Use
  Company Number: 2006121758

PATIENT
  Age: 48 Year
  Sex: Female

DRUGS (2)
  1. ATORVASTATIN CALCIUM [Suspect]
     Indication: HYPERLIPIDAEMIA
     Dosage: ORAL
     Route: 048
  2. ATENOLOL [Suspect]
     Indication: HYPERTENSION
     Dosage: (50 MG)

REACTIONS (4)
  - ABDOMINAL PAIN [None]
  - ASTHENIA [None]
  - LIPIDS INCREASED [None]
  - MUSCLE SPASMS [None]
